FAERS Safety Report 7865530-9 (Version None)
Quarter: 2011Q4

REPORT INFORMATION
  Report Type: 
  Country: None (occurrence: None)
  Receive Date: 20111028
  Receipt Date: 20110113
  Transmission Date: 20120403
  Serious: No
  Sender: FDA-Public Use
  Company Number: US-GLAXOSMITHKLINE-A0905864A

PATIENT
  Age: 63 Year
  Sex: Male

DRUGS (3)
  1. METHYLPREDNISOLONE [Concomitant]
  2. ADVAIR DISKUS 100/50 [Suspect]
     Indication: NASOPHARYNGITIS
     Dosage: 1PUFF PER DAY
     Route: 055
     Dates: start: 20110110, end: 20110117
  3. NONE [Concomitant]

REACTIONS (4)
  - AGEUSIA [None]
  - DYSPHONIA [None]
  - DYSGEUSIA [None]
  - DECREASED APPETITE [None]
